FAERS Safety Report 12744531 (Version 1)
Quarter: 2016Q3

REPORT INFORMATION
  Report Type: Spontaneous
  Country: US (occurrence: US)
  Receive Date: 20160914
  Receipt Date: 20160914
  Transmission Date: 20161109
  Serious: No
  Sender: FDA-Public Use
  Company Number: US-JAZZ-2016-US-009431

PATIENT
  Age: 50 Year
  Sex: Male
  Weight: 99.77 kg

DRUGS (17)
  1. LATUDA [Concomitant]
     Active Substance: LURASIDONE HYDROCHLORIDE
  2. XYREM [Suspect]
     Active Substance: SODIUM OXYBATE
     Dosage: 3 G, BID
     Route: 048
     Dates: start: 201604, end: 201605
  3. LAMOTRIGINE. [Concomitant]
     Active Substance: LAMOTRIGINE
  4. PROVIGIL [Concomitant]
     Active Substance: MODAFINIL
  5. TESTOSTERONE. [Concomitant]
     Active Substance: TESTOSTERONE
  6. VITAMIN D [Concomitant]
     Active Substance: CHOLECALCIFEROL
  7. XYREM [Suspect]
     Active Substance: SODIUM OXYBATE
     Dosage: 3.75 G, BID
     Route: 048
     Dates: start: 201605
  8. ALEVE [Concomitant]
     Active Substance: NAPROXEN SODIUM
  9. PERPHENAZINE. [Concomitant]
     Active Substance: PERPHENAZINE
  10. VENLAFAXINE [Concomitant]
     Active Substance: VENLAFAXINE HYDROCHLORIDE
  11. PULMICORT TURBUHALER [Concomitant]
     Active Substance: BUDESONIDE
  12. XYREM [Suspect]
     Active Substance: SODIUM OXYBATE
     Indication: NARCOLEPSY
     Dosage: 2.25 G, BID
     Route: 048
     Dates: start: 201604, end: 201604
  13. NAPROXEN. [Concomitant]
     Active Substance: NAPROXEN
  14. TOPIRAMATE. [Concomitant]
     Active Substance: TOPIRAMATE
  15. VENTOLIN [Concomitant]
     Active Substance: ALBUTEROL SULFATE
  16. OMEPRAZOLE. [Concomitant]
     Active Substance: OMEPRAZOLE
  17. SIMVASTATIN. [Concomitant]
     Active Substance: SIMVASTATIN

REACTIONS (3)
  - Therapeutic response unexpected [Unknown]
  - Nasopharyngitis [Recovering/Resolving]
  - Pre-existing condition improved [Unknown]

NARRATIVE: CASE EVENT DATE: 201604
